FAERS Safety Report 23653381 (Version 1)
Quarter: 2024Q1

REPORT INFORMATION
  Report Type: Report from Study
  Country: DE (occurrence: DE)
  Receive Date: 20240320
  Receipt Date: 20240320
  Transmission Date: 20240410
  Serious: Yes (Other)
  Sender: FDA-Public Use
  Company Number: DE-IPSEN Group, Research and Development-2019-21290

PATIENT

DRUGS (10)
  1. CABOZANTINIB [Suspect]
     Active Substance: CABOZANTINIB
     Indication: Renal cell carcinoma
     Dosage: 40 MG, QD
     Route: 048
     Dates: start: 20191017, end: 20191123
  2. CABOZANTINIB [Suspect]
     Active Substance: CABOZANTINIB
     Dosage: 20 MG, 3 DAYS PER WEEK
     Route: 048
     Dates: start: 20200102, end: 20200206
  3. CABOZANTINIB [Suspect]
     Active Substance: CABOZANTINIB
     Dosage: 20 MG, QD
     Route: 048
     Dates: start: 20200207, end: 20200305
  4. CABOZANTINIB [Suspect]
     Active Substance: CABOZANTINIB
     Dosage: 20 MG,THREE DAYS PER WEEK
     Route: 048
     Dates: start: 20200306, end: 20200817
  5. AMLODIPINE BESYLATE [Concomitant]
     Active Substance: AMLODIPINE BESYLATE
     Indication: Hypertension
     Dosage: 5 MG, QD
     Route: 048
  6. CANDESARTAN [Concomitant]
     Active Substance: CANDESARTAN
     Indication: Hypertension
     Dosage: 16 MG, QD
     Route: 048
     Dates: start: 202002
  7. LEVOTHYROXINE SODIUM [Concomitant]
     Active Substance: LEVOTHYROXINE SODIUM
     Indication: Hypothyroidism
     Dosage: 125 UG, QD
     Route: 048
  8. METAMIZOLE [Concomitant]
     Active Substance: METAMIZOLE
     Indication: Pain prophylaxis
     Dosage: 500 MG, PRN
     Route: 048
  9. TAMSULOSIN [Concomitant]
     Active Substance: TAMSULOSIN
     Indication: Benign prostatic hyperplasia
     Dosage: 0.4 MG, QD
     Route: 048
  10. TORSEMIDE [Concomitant]
     Active Substance: TORSEMIDE
     Indication: Hypertension
     Dosage: 10 MG, QD
     Route: 048

REACTIONS (7)
  - Polyneuropathy [Not Recovered/Not Resolved]
  - Dry mouth [Recovered/Resolved]
  - Palmar-plantar erythrodysaesthesia syndrome [Not Recovered/Not Resolved]
  - Pleural disorder [Not Recovered/Not Resolved]
  - Scrotal inflammation [Not Recovered/Not Resolved]
  - Off label use [Unknown]
  - Off label use [Unknown]

NARRATIVE: CASE EVENT DATE: 20191111
